FAERS Safety Report 8004704-3 (Version None)
Quarter: 2011Q4

REPORT INFORMATION
  Report Type: 
  Country: None (occurrence: None)
  Receive Date: 20111223
  Receipt Date: 20111209
  Transmission Date: 20120403
  Serious: Yes (Hospitalization)
  Sender: FDA-Public Use
  Company Number: FR-COVIDIEN/TYCO HEALTHCARE/MALLINCKRODT-T201102950

PATIENT
  Age: 65 Year
  Sex: Female

DRUGS (1)
  1. OPTIJECT [Suspect]
     Indication: COMPUTERISED TOMOGRAM
     Dosage: UNK
     Route: 042
     Dates: start: 20110721, end: 20110721

REACTIONS (2)
  - PRURITUS [None]
  - RASH [None]
